FAERS Safety Report 6436331-3 (Version None)
Quarter: 2009Q4

REPORT INFORMATION
  Report Type: 
  Country: None (occurrence: None)
  Receive Date: 20091111
  Receipt Date: 20091104
  Transmission Date: 20100525
  Serious: Yes (Other)
  Sender: FDA-Public Use
  Company Number: B0603396A

PATIENT

DRUGS (2)
  1. ABACAVIR SULFATE AND LAMIVUDINE [Suspect]
     Indication: DRUG USE FOR UNKNOWN INDICATION
  2. REYATAZ [Suspect]
     Indication: DRUG USE FOR UNKNOWN INDICATION

REACTIONS (3)
  - CLEFT PALATE [None]
  - DRUG EXPOSURE DURING PREGNANCY [None]
  - LIMB MALFORMATION [None]
